FAERS Safety Report 6620779-8 (Version None)
Quarter: 2010Q1

REPORT INFORMATION
  Report Type: 
  Country: None (occurrence: None)
  Receive Date: 20100309
  Receipt Date: 20100225
  Transmission Date: 20100710
  Serious: Yes (Other)
  Sender: FDA-Public Use
  Company Number: GB-WATSON-2010-02570

PATIENT

DRUGS (2)
  1. ALENDRONATE SODIUM [Suspect]
     Indication: PROPHYLAXIS
     Dosage: 70 MG, 1/WEEK
     Route: 065
     Dates: start: 20090701
  2. LEVOTHYROXINE SODIUM [Concomitant]
     Indication: DRUG USE FOR UNKNOWN INDICATION

REACTIONS (9)
  - ABDOMINAL PAIN UPPER [None]
  - DIARRHOEA [None]
  - DIVERTICULUM [None]
  - GASTRIC POLYPS [None]
  - GASTRITIS [None]
  - GASTRITIS EROSIVE [None]
  - HAEMATOCHEZIA [None]
  - HIATUS HERNIA [None]
  - OESOPHAGITIS [None]
